FAERS Safety Report 13109246 (Version 4)
Quarter: 2017Q1

REPORT INFORMATION
  Report Type: Spontaneous
  Country: IT (occurrence: IT)
  Receive Date: 20170112
  Receipt Date: 20170202
  Transmission Date: 20170428
  Serious: Yes (Death)
  Sender: FDA-Public Use
  Company Number: IT-TEVA-728374ACC

PATIENT
  Age: 64 Year
  Sex: Male

DRUGS (6)
  1. ASPIRIN. [Interacting]
     Active Substance: ASPIRIN
     Indication: CEREBRAL INFARCTION
     Route: 065
  2. WARFARIN [Interacting]
     Active Substance: WARFARIN
     Indication: CEREBRAL ARTERY EMBOLISM
  3. TICLOPIDINA [Suspect]
     Active Substance: TICLOPIDINE
     Indication: CEREBRAL ARTERY EMBOLISM
     Route: 065
  4. TICLOPIDINA [Interacting]
     Active Substance: TICLOPIDINE
     Indication: CEREBRAL INFARCTION
  5. ASPIRIN. [Concomitant]
     Active Substance: ASPIRIN
     Indication: EMBOLIC CEREBRAL INFARCTION
  6. WARFARIN [Interacting]
     Active Substance: WARFARIN
     Indication: CEREBRAL INFARCTION

REACTIONS (6)
  - Embolic cerebral infarction [Fatal]
  - Drug ineffective [Fatal]
  - Cerebral ischaemia [Fatal]
  - Cerebral haemorrhage [Fatal]
  - Subdural haematoma [Fatal]
  - Labelled drug-drug interaction medication error [Fatal]
